FAERS Safety Report 9420845 (Version 2)
Quarter: 2013Q3

REPORT INFORMATION
  Report Type: Report from Study
  Country: BR (occurrence: BR)
  Receive Date: 20130725
  Receipt Date: 20130822
  Transmission Date: 20140515
  Serious: Yes (Hospitalization, Other)
  Sender: FDA-Public Use
  Company Number: PHHY2013BR077863

PATIENT
  Age: 55 Year
  Sex: Male

DRUGS (3)
  1. LEPONEX [Suspect]
     Indication: SCHIZOPHRENIA
     Dosage: 3 DF, QD (1 TAB IN THE MORNING AND 2 TABLETS AT NIGHT)
     Route: 048
     Dates: end: 20130719
  2. RIVOTRIL [Concomitant]
     Indication: ANXIETY
     Dosage: 1 DF, QD
     Route: 048
     Dates: start: 201303
  3. DEPAKOTE [Concomitant]
     Indication: ANXIETY
     Dosage: 2 DF, QD
     Route: 048
     Dates: start: 201303

REACTIONS (9)
  - Nervousness [Unknown]
  - Screaming [Recovering/Resolving]
  - Anxiety [Unknown]
  - Erectile dysfunction [Not Recovered/Not Resolved]
  - Schizophrenia [Unknown]
  - Agitation [Unknown]
  - Abnormal behaviour [Recovering/Resolving]
  - Laziness [Not Recovered/Not Resolved]
  - Somnolence [Not Recovered/Not Resolved]
